FAERS Safety Report 5495309-7 (Version None)
Quarter: 2007Q4

REPORT INFORMATION
  Report Type: 
  Country: None (occurrence: None)
  Receive Date: 20071023
  Receipt Date: 20071016
  Transmission Date: 20080405
  Serious: Yes (Death)
  Sender: FDA-Public Use
  Company Number: 2007333195

PATIENT
  Age: 2 Month
  Sex: Female

DRUGS (1)
  1. PEDIACARE INFANT DROPPER DECONGESTANT AND COUGH (PE) (DEXTROMETHORPHAN [Suspect]
     Indication: NASOPHARYNGITIS
     Dosage: 0.3ML EVERY 4- 6 HRS, INTERMITTENTLY, ORAL
     Route: 048
     Dates: start: 20070712, end: 20070714

REACTIONS (1)
  - RESPIRATORY ARREST [None]
